FAERS Safety Report 4731885-7 (Version None)
Quarter: 2005Q3

REPORT INFORMATION
  Report Type: 
  Country: None (occurrence: None)
  Receive Date: 20050802
  Receipt Date: 20050802
  Transmission Date: 20060218
  Serious: Yes (Life-Threatening)
  Sender: FDA-Public Use
  Company Number: None

PATIENT
  Age: 34 Year
  Sex: Male
  Weight: 59 kg

DRUGS (6)
  1. PENTAMIDINE 300 MG APP [Suspect]
     Indication: PNEUMOCYSTIS JIROVECI PNEUMONIA
     Dosage: 300 MG Q24H INTRAVENOUS
     Route: 042
     Dates: start: 20050615, end: 20050629
  2. ACULAR [Concomitant]
  3. PREDNISONE [Concomitant]
  4. DIFLUCAN [Concomitant]
  5. BACITRACIN [Concomitant]
  6. PREVACID [Concomitant]

REACTIONS (1)
  - HYPOGLYCAEMIA [None]
